FAERS Safety Report 6468630-3 (Version None)
Quarter: 2009Q4

REPORT INFORMATION
  Report Type: 
  Country: None (occurrence: None)
  Receive Date: 20091203
  Receipt Date: 20091125
  Transmission Date: 20100525
  Serious: Yes (Other)
  Sender: FDA-Public Use
  Company Number: GB-ROCHE-671294

PATIENT
  Age: 39 Year
  Sex: Male

DRUGS (3)
  1. TAMIFLU [Suspect]
     Indication: H1N1 INFLUENZA
     Dosage: DOSE NOT CHANGED
     Route: 065
     Dates: start: 20091120, end: 20091124
  2. ALLOPURINOL [Concomitant]
  3. PLAQUENIL [Concomitant]

REACTIONS (1)
  - SUICIDAL IDEATION [None]
